FAERS Safety Report 7620533-4 (Version None)
Quarter: 2011Q3

REPORT INFORMATION
  Report Type: 
  Country: None (occurrence: None)
  Receive Date: 20110719
  Receipt Date: 20110713
  Transmission Date: 20111222
  Serious: Yes (Other)
  Sender: FDA-Public Use
  Company Number: DE-PFIZER INC-2011158390

PATIENT
  Age: 27 Year
  Sex: Male

DRUGS (2)
  1. ZYPREXA [Concomitant]
     Dosage: 10 MG, 1X/DAY
     Dates: end: 20110210
  2. ZIPRASIDONE HYDROCHLORIDE [Suspect]
     Dosage: 80 MG, 1X/DAY
     Dates: start: 20110211

REACTIONS (1)
  - PLEUROTHOTONUS [None]
